FAERS Safety Report 6477498-0 (Version None)
Quarter: 2009Q4

REPORT INFORMATION
  Report Type: 
  Country: None (occurrence: None)
  Receive Date: 20091207
  Receipt Date: 20091028
  Transmission Date: 20100525
  Serious: Yes (Life-Threatening)
  Sender: FDA-Public Use
  Company Number: JP-SANOFI-AVENTIS-F01200901041

PATIENT
  Sex: Male
  Weight: 60 kg

DRUGS (13)
  1. CLOPIDOGREL BISULFATE [Suspect]
     Indication: ACUTE CORONARY SYNDROME
     Dosage: DOSE TEXT: MAINTENANCE DOSE
     Route: 048
     Dates: start: 20080912
  2. CLOPIDOGREL BISULFATE [Suspect]
     Indication: ANGINA UNSTABLE
     Dosage: DOSE TEXT: MAINTENANCE DOSE
     Route: 048
     Dates: start: 20080912
  3. ASPIRIN [Concomitant]
     Indication: ANGINA UNSTABLE
     Route: 048
     Dates: start: 20080912
  4. BEPRICOR [Concomitant]
     Route: 048
     Dates: start: 20070519, end: 20090811
  5. ASPENON [Concomitant]
     Route: 048
     Dates: start: 20080829, end: 20090501
  6. WARFARIN SODIUM [Concomitant]
     Route: 048
     Dates: start: 20080422
  7. PARAMIDIN [Concomitant]
     Route: 048
     Dates: start: 20080422
  8. FRANDOL [Concomitant]
     Indication: ANGINA UNSTABLE
     Route: 065
     Dates: start: 20080912, end: 20090512
  9. GASTER [Concomitant]
     Route: 048
     Dates: start: 20080912, end: 20090811
  10. VASOLAN [Concomitant]
     Route: 048
     Dates: start: 20080912, end: 20090327
  11. DEPAS [Concomitant]
     Indication: NEUROSIS
     Route: 048
     Dates: start: 20080912, end: 20090327
  12. LIPITOR [Concomitant]
     Indication: ANGINA UNSTABLE
     Route: 048
     Dates: start: 20080912
  13. PARIET [Concomitant]
     Route: 048
     Dates: start: 20090812

REACTIONS (1)
  - ARTERIOSPASM CORONARY [None]
